FAERS Safety Report 22063602 (Version 2)
Quarter: 2023Q1

REPORT INFORMATION
  Report Type: Spontaneous
  Country: PT (occurrence: PT)
  Receive Date: 20230306
  Receipt Date: 20230315
  Transmission Date: 20230417
  Serious: Yes (Other)
  Sender: FDA-Public Use
  Company Number: PT-BAXTER-2023BAX014115

PATIENT
  Age: 75 Year
  Sex: Male

DRUGS (3)
  1. ACETAMINOPHEN [Suspect]
     Active Substance: ACETAMINOPHEN
     Indication: Neck pain
     Dosage: 500 MG, THREE TIMES A DAY
     Route: 065
  2. THIOCOLCHICOSIDE [Suspect]
     Active Substance: THIOCOLCHICOSIDE
     Indication: Neck pain
     Dosage: 2 MG, TID (8 HOURS)
     Route: 065
  3. OXAZEPAM [Suspect]
     Active Substance: OXAZEPAM
     Indication: Hallucination
     Dosage: 15 MG THREE TIMES A DAY
     Route: 065

REACTIONS (2)
  - Hallucination, visual [Recovered/Resolved]
  - Sedation [Unknown]
